FAERS Safety Report 15806578 (Version 1)
Quarter: 2019Q1

REPORT INFORMATION
  Report Type: Spontaneous
  Country: US (occurrence: US)
  Receive Date: 20190107
  Receipt Date: 20190107
  Transmission Date: 20190417
  Serious: Yes (Hospitalization)
  Sender: FDA-Public Use
  Company Number: None

PATIENT

DRUGS (1)
  1. PHENYLEPHRINE [Suspect]
     Active Substance: PHENYLEPHRINE\PHENYLEPHRINE HYDROCHLORIDE
     Dosage: ?          OTHER STRENGTH:100 UG/ML; SYRINGE?
     Route: 042

REACTIONS (3)
  - Product communication issue [None]
  - Product label confusion [None]
  - Incorrect dose administered [None]
